FAERS Safety Report 12156084 (Version 1)
Quarter: 2016Q1

REPORT INFORMATION
  Report Type: Spontaneous
  Country: FR (occurrence: FR)
  Receive Date: 20160307
  Receipt Date: 20160307
  Transmission Date: 20160526
  Serious: Yes (Other)
  Sender: FDA-Public Use
  Company Number: FR-ELI_LILLY_AND_COMPANY-FR201602008268

PATIENT
  Age: 49 Year
  Sex: Male

DRUGS (2)
  1. CYMBALTA [Suspect]
     Active Substance: DULOXETINE HYDROCHLORIDE
     Indication: SEASONAL AFFECTIVE DISORDER
     Dosage: 30 MG, QD
     Route: 048
     Dates: start: 201012, end: 201304
  2. SERESTA [Suspect]
     Active Substance: OXAZEPAM
     Indication: GENERALISED ANXIETY DISORDER
     Dosage: 25 MG, QD (CONFLICTING, REPORTED AS 15MG (1 TABLET)/DAY AS WELL)
     Route: 065
     Dates: start: 201012, end: 201406

REACTIONS (13)
  - Palpitations [Recovering/Resolving]
  - Insomnia [Recovering/Resolving]
  - Sciatica [Recovering/Resolving]
  - Suicide attempt [Recovering/Resolving]
  - Weight fluctuation [Recovering/Resolving]
  - Irritability [Unknown]
  - Drug ineffective [Unknown]
  - Libido increased [Recovering/Resolving]
  - Hypersensitivity [Unknown]
  - Mood altered [Recovering/Resolving]
  - Emotional disorder [Unknown]
  - Tinnitus [Recovering/Resolving]
  - Angina pectoris [Unknown]

NARRATIVE: CASE EVENT DATE: 2013
